FAERS Safety Report 9566938 (Version 1)
Quarter: 2013Q3

REPORT INFORMATION
  Report Type: Spontaneous
  Country: US (occurrence: US)
  Receive Date: 20130930
  Receipt Date: 20130930
  Transmission Date: 20140515
  Serious: No
  Sender: FDA-Public Use
  Company Number: US-AMGEN-USASP2012061479

PATIENT
  Age: 85 Year
  Sex: Female

DRUGS (7)
  1. ENBREL [Suspect]
     Indication: PRODUCT USED FOR UNKNOWN INDICATION
     Dosage: 50 MG, QWK
     Route: 058
  2. METHOTREXATE [Concomitant]
     Dosage: 2.5 MG, UNK
  3. PROTONIX [Concomitant]
     Dosage: 40 MG, UNK
  4. CELEBREX [Concomitant]
     Dosage: 200 MG, UNK
  5. ENABLEX                            /01760401/ [Concomitant]
     Dosage: 7.5 MG, UNK
  6. ASPIRE [Concomitant]
     Dosage: 81 MG
  7. TOPROL [Concomitant]
     Dosage: 50 MG, UNK

REACTIONS (2)
  - Musculoskeletal stiffness [Unknown]
  - Burn infection [Unknown]
